FAERS Safety Report 15359564 (Version 2)
Quarter: 2018Q3

REPORT INFORMATION
  Report Type: Spontaneous
  Country: CA (occurrence: CA)
  Receive Date: 20180907
  Receipt Date: 20180914
  Transmission Date: 20181010
  Serious: Yes (Other)
  Sender: FDA-Public Use
  Company Number: CA-CELLTRION INC.-2017CA010683

PATIENT

DRUGS (28)
  1. INFLECTRA [Suspect]
     Active Substance: INFLIXIMAB-DYYB
     Dosage: 300 MG CYCLIC EVERY 6WEEKS
     Route: 042
     Dates: start: 20171103
  2. INFLECTRA [Suspect]
     Active Substance: INFLIXIMAB-DYYB
     Dosage: 310 MG, CYCLIC (EVERY 6 WEEKS)
     Route: 042
     Dates: start: 20180713
  3. INFLECTRA [Suspect]
     Active Substance: INFLIXIMAB-DYYB
     Dosage: 310 MG, CYCLIC (EVERY 6 WEEKS)
     Route: 042
     Dates: start: 20180601
  4. GLYBURIDE. [Concomitant]
     Active Substance: GLYBURIDE
     Dosage: 2.5 MG, DAILY
     Route: 048
     Dates: start: 2002
  5. HYDROCORTISONE. [Concomitant]
     Active Substance: HYDROCORTISONE
     Dosage: UNK
     Dates: start: 20170629
  6. OMEPRAZOLE. [Concomitant]
     Active Substance: OMEPRAZOLE
     Dosage: UNK
  7. INFLECTRA [Suspect]
     Active Substance: INFLIXIMAB-DYYB
     Dosage: 300 MG, CYCLIC (EVERY 6 WEEKS)
     Route: 042
     Dates: start: 20180124, end: 20180124
  8. INFLECTRA [Suspect]
     Active Substance: INFLIXIMAB-DYYB
     Dosage: 310 MG, CYCLIC (EVERY 6 WEEKS)
     Route: 042
     Dates: start: 20180713
  9. METFORMIN [Concomitant]
     Active Substance: METFORMIN HYDROCHLORIDE
     Dosage: 1000 MG, BID
     Route: 048
     Dates: start: 2002
  10. AZOPT [Concomitant]
     Active Substance: BRINZOLAMIDE
     Dosage: UNK
     Route: 065
     Dates: start: 2002
  11. VITAMIN B12 [Concomitant]
     Active Substance: CYANOCOBALAMIN
     Dosage: UNK
  12. INFLECTRA [Suspect]
     Active Substance: INFLIXIMAB-DYYB
     Dosage: 300 MG, CYCLIC,(EVERY 6 WEEKS)
     Route: 042
     Dates: start: 20171214
  13. INFLECTRA [Suspect]
     Active Substance: INFLIXIMAB-DYYB
     Dosage: 310 MG, CYCLIC (EVERY 6 WEEKS)
     Route: 042
     Dates: start: 20180420
  14. CITALOPRAM [Concomitant]
     Active Substance: CITALOPRAM HYDROBROMIDE
     Dosage: 10 MG, DAILY
     Route: 048
     Dates: start: 201705
  15. INFLECTRA [Suspect]
     Active Substance: INFLIXIMAB-DYYB
     Indication: COLITIS ULCERATIVE
     Dosage: MAINTENANCE EVERY 8 WEEKS
     Route: 042
  16. INFLECTRA [Suspect]
     Active Substance: INFLIXIMAB-DYYB
     Dosage: 310 MG, CYCLIC (EVERY 6 WEEKS)
     Route: 042
     Dates: start: 20180307
  17. VITAMIN B12 [Concomitant]
     Active Substance: CYANOCOBALAMIN
     Dosage: UNK
  18. INFLECTRA [Suspect]
     Active Substance: INFLIXIMAB-DYYB
     Dosage: 300 MG CYCLIC EVERY 0,2,6 WEEKS, THEN EVERY 8 WEEKS
     Route: 042
     Dates: start: 20170629, end: 20170921
  19. INFLECTRA [Suspect]
     Active Substance: INFLIXIMAB-DYYB
     Dosage: 300 MG, CYCLIC (EVERY 6 WEEKS)
     Route: 042
     Dates: start: 20170921
  20. CANDESARTAN. [Concomitant]
     Active Substance: CANDESARTAN
     Dosage: 4 MG, DAILY
     Route: 048
     Dates: start: 2005
  21. TRAVOPROST. [Concomitant]
     Active Substance: TRAVOPROST
     Dosage: UNK
     Route: 065
     Dates: start: 2002
  22. BRIMONIDINE [Concomitant]
     Active Substance: BRIMONIDINE TARTRATE
     Dosage: UNK
  23. INFLECTRA [Suspect]
     Active Substance: INFLIXIMAB-DYYB
     Dosage: 310 MG, CYCLIC (EVERY 6 WEEKS)
     Route: 042
     Dates: start: 20180824
  24. RABEPRAZOLE [Concomitant]
     Active Substance: RABEPRAZOLE
     Dosage: 20 MG, CYCLIC EVERY 2 DAYS
     Route: 048
     Dates: start: 2007
  25. IMURAN [Concomitant]
     Active Substance: AZATHIOPRINE
     Dosage: 25 MG, ONCE DAILY
     Route: 048
     Dates: start: 20170609
  26. CLONAZEPAM. [Concomitant]
     Active Substance: CLONAZEPAM
     Dosage: UNK
  27. INFLECTRA [Suspect]
     Active Substance: INFLIXIMAB-DYYB
     Dosage: 335 MG, (5MG/KG), (EVERY 6 WEEKS)
     Route: 042
  28. COMBIGAN [Concomitant]
     Active Substance: BRIMONIDINE TARTRATE\TIMOLOL MALEATE
     Dosage: UNK
     Route: 065
     Dates: start: 2002

REACTIONS (13)
  - Product use issue [Unknown]
  - Condition aggravated [Unknown]
  - Off label use [Unknown]
  - Drug level above therapeutic [Unknown]
  - Blood pressure fluctuation [Unknown]
  - Weight increased [Unknown]
  - Drug effect incomplete [Unknown]
  - Blood pressure increased [Unknown]
  - Haematochezia [Unknown]
  - Anxiety [Unknown]
  - Gastrointestinal inflammation [Unknown]
  - Off label use [Unknown]
  - Faecal calprotectin increased [Unknown]

NARRATIVE: CASE EVENT DATE: 2017
